FAERS Safety Report 7173803-0 (Version None)
Quarter: 2010Q4

REPORT INFORMATION
  Report Type: 
  Country: None (occurrence: None)
  Receive Date: 20101202
  Receipt Date: 20101117
  Transmission Date: 20110411
  Serious: Yes (Hospitalization)
  Sender: FDA-Public Use
  Company Number: GER/GER/10/0016661

PATIENT
  Age: 55 Year
  Sex: Female

DRUGS (5)
  1. VENLAFAXINE [Suspect]
     Indication: PRODUCT USED FOR UNKNOWN INDICATION
     Dosage: 75 MG, 1 IN 1 D, ORAL; 150 MG, 1 IN 1 D, ORAL; 225 MG, 1 IN1 D, ORAL; 150 MG, 1 IN 1 D, ORAL; 75 MG,
     Route: 048
     Dates: start: 20100427, end: 20100428
  2. VENLAFAXINE [Suspect]
     Indication: PRODUCT USED FOR UNKNOWN INDICATION
     Dosage: 75 MG, 1 IN 1 D, ORAL; 150 MG, 1 IN 1 D, ORAL; 225 MG, 1 IN1 D, ORAL; 150 MG, 1 IN 1 D, ORAL; 75 MG,
     Route: 048
     Dates: start: 20100429, end: 20100505
  3. VENLAFAXINE [Suspect]
     Indication: PRODUCT USED FOR UNKNOWN INDICATION
     Dosage: 75 MG, 1 IN 1 D, ORAL; 150 MG, 1 IN 1 D, ORAL; 225 MG, 1 IN1 D, ORAL; 150 MG, 1 IN 1 D, ORAL; 75 MG,
     Route: 048
     Dates: start: 20100506, end: 20100517
  4. VENLAFAXINE [Suspect]
     Indication: PRODUCT USED FOR UNKNOWN INDICATION
     Dosage: 75 MG, 1 IN 1 D, ORAL; 150 MG, 1 IN 1 D, ORAL; 225 MG, 1 IN1 D, ORAL; 150 MG, 1 IN 1 D, ORAL; 75 MG,
     Route: 048
     Dates: start: 20100518, end: 20100607
  5. VENLAFAXINE [Suspect]
     Indication: PRODUCT USED FOR UNKNOWN INDICATION
     Dosage: 75 MG, 1 IN 1 D, ORAL; 150 MG, 1 IN 1 D, ORAL; 225 MG, 1 IN1 D, ORAL; 150 MG, 1 IN 1 D, ORAL; 75 MG,
     Route: 048
     Dates: start: 20100608, end: 20100609

REACTIONS (1)
  - RESTLESS LEGS SYNDROME [None]
